FAERS Safety Report 17846921 (Version 4)
Quarter: 2021Q2

REPORT INFORMATION
  Report Type: Spontaneous
  Country: JP (occurrence: JP)
  Receive Date: 20200601
  Receipt Date: 20210528
  Transmission Date: 20210717
  Serious: Yes (Death, Other)
  Sender: FDA-Public Use
  Company Number: NVSC2020JP145826

PATIENT
  Age: 78 Year
  Sex: Female

DRUGS (1)
  1. IMATINIB. [Suspect]
     Active Substance: IMATINIB MESYLATE
     Indication: GASTROINTESTINAL STROMAL TUMOUR
     Dosage: 400 MG
     Route: 065

REACTIONS (14)
  - Gastrointestinal stromal tumour [Unknown]
  - Pneumonia [Unknown]
  - Metastases to bone [Unknown]
  - Sepsis [Fatal]
  - Immobilisation syndrome [Unknown]
  - Muscular weakness [Unknown]
  - Pleural effusion [Unknown]
  - Malignant neoplasm progression [Unknown]
  - Nutritional condition abnormal [Unknown]
  - Back pain [Unknown]
  - Decreased appetite [Unknown]
  - Metastases to liver [Unknown]
  - Pain [Unknown]
  - Paralysis [Unknown]
